FAERS Safety Report 11302299 (Version 6)
Quarter: 2020Q2

REPORT INFORMATION
  Report Type: Report from Study
  Country: GT (occurrence: GT)
  Receive Date: 20150723
  Receipt Date: 20200521
  Transmission Date: 20200713
  Serious: Yes (Hospitalization)
  Sender: FDA-Public Use
  Company Number: PHHY2015GT086394

PATIENT
  Age: 35 Year
  Sex: Female

DRUGS (5)
  1. VITAMIN D3 [Concomitant]
     Active Substance: CHOLECALCIFEROL
     Indication: PRODUCT USED FOR UNKNOWN INDICATION
     Route: 065
  2. FINGOLIMOD. [Suspect]
     Active Substance: FINGOLIMOD
     Indication: RELAPSING-REMITTING MULTIPLE SCLEROSIS
     Dosage: 0.5 MG, QD
     Route: 048
     Dates: start: 20150314
  3. FINGOLIMOD. [Suspect]
     Active Substance: FINGOLIMOD
     Dosage: 0.5 MG, QD
     Route: 048
     Dates: start: 20150317
  4. BENZOPHENONE [Concomitant]
     Active Substance: BENZOPHENONE
     Indication: PRODUCT USED FOR UNKNOWN INDICATION
     Route: 065
  5. INTERFERON BETA NOS [Concomitant]
     Active Substance: INTERFERON BETA
     Indication: PRODUCT USED FOR UNKNOWN INDICATION
     Route: 065

REACTIONS (19)
  - Anaemia [Recovering/Resolving]
  - Blood pressure decreased [Recovering/Resolving]
  - Mean platelet volume decreased [Recovering/Resolving]
  - Renal failure [Unknown]
  - Haematuria [Recovering/Resolving]
  - Pain in extremity [Unknown]
  - Urine output decreased [Unknown]
  - Glomerulonephritis [Recovering/Resolving]
  - Proteinuria [Recovering/Resolving]
  - Neutrophil count increased [Recovering/Resolving]
  - Lymphocyte count decreased [Recovering/Resolving]
  - Monocyte percentage increased [Recovering/Resolving]
  - Systemic lupus erythematosus [Recovering/Resolving]
  - IgA nephropathy [Recovering/Resolving]
  - Lupus nephritis [Recovering/Resolving]
  - Pain [Unknown]
  - Rash [Unknown]
  - Arthralgia [Unknown]
  - Neutrophil percentage increased [Recovering/Resolving]

NARRATIVE: CASE EVENT DATE: 201506
